FAERS Safety Report 11194852 (Version 6)
Quarter: 2021Q2

REPORT INFORMATION
  Report Type: Other
  Country: CA (occurrence: CA)
  Receive Date: 20150617
  Receipt Date: 20210402
  Transmission Date: 20210716
  Serious: Yes (Other)
  Sender: FDA-Public Use
  Company Number: CA-ROCHE-1451824

PATIENT
  Age: 47 Year
  Sex: Male

DRUGS (12)
  1. METFORMIN [Concomitant]
     Active Substance: METFORMIN HYDROCHLORIDE
  2. METHYLPREDNISOLONE. [Concomitant]
     Active Substance: METHYLPREDNISOLONE
     Indication: PREMEDICATION
     Route: 042
     Dates: start: 20140731
  3. ACETAMINOPHEN. [Concomitant]
     Active Substance: ACETAMINOPHEN
     Indication: PREMEDICATION
     Route: 048
     Dates: start: 20140731
  4. SYNTHROID [Concomitant]
     Active Substance: LEVOTHYROXINE SODIUM
  5. RITUXAN [Suspect]
     Active Substance: RITUXIMAB
     Indication: GRANULOMATOSIS WITH POLYANGIITIS
     Dosage: ON DAY 1,15
     Route: 042
     Dates: start: 20140731, end: 20200923
  6. RITUXAN [Suspect]
     Active Substance: RITUXIMAB
     Indication: VASCULITIS
     Dosage: ON DAY 1,15
     Route: 042
     Dates: start: 20140814
  7. PREDNISONE. [Concomitant]
     Active Substance: PREDNISONE
  8. RITUXAN [Suspect]
     Active Substance: RITUXIMAB
     Dosage: ON DAY 1,15
     Route: 042
     Dates: start: 20150702
  9. RITUXAN [Suspect]
     Active Substance: RITUXIMAB
     Dosage: ON DAY 1,15
     Route: 042
     Dates: start: 20150716, end: 20180510
  10. DIPHENHYDRAMINE HCL [Concomitant]
     Active Substance: DIPHENHYDRAMINE HYDROCHLORIDE
     Indication: PREMEDICATION
     Route: 048
     Dates: start: 20140731
  11. AZATHIOPRINE. [Concomitant]
     Active Substance: AZATHIOPRINE
  12. PROPRANOLOL [Concomitant]
     Active Substance: PROPRANOLOL HYDROCHLORIDE

REACTIONS (5)
  - Hypertension [Unknown]
  - Hypotension [Unknown]
  - Protein urine [Unknown]
  - Anxiety [Unknown]
  - Depression [Unknown]

NARRATIVE: CASE EVENT DATE: 20140814
